FAERS Safety Report 6666038-9 (Version None)
Quarter: 2010Q2

REPORT INFORMATION
  Report Type: 
  Country: None (occurrence: None)
  Receive Date: 20100402
  Receipt Date: 20100329
  Transmission Date: 20101027
  Serious: Yes (Hospitalization)
  Sender: FDA-Public Use
  Company Number: A0853109A

PATIENT
  Age: 55 Year
  Sex: Male

DRUGS (6)
  1. AVANDIA [Suspect]
     Indication: DIABETES MELLITUS
     Dosage: 4MG TWICE PER DAY
     Route: 048
     Dates: start: 20000316, end: 20001021
  2. GLUCOPHAGE [Concomitant]
  3. ASPIRIN [Concomitant]
  4. ZOCOR [Concomitant]
  5. CELEBREX [Concomitant]
  6. CENTRUM [Concomitant]

REACTIONS (1)
  - MYOCARDIAL INFARCTION [None]
